FAERS Safety Report 8251596-3 (Version None)
Quarter: 2012Q2

REPORT INFORMATION
  Report Type: 
  Country: None (occurrence: None)
  Receive Date: 20120402
  Receipt Date: 20120329
  Transmission Date: 20120825
  Serious: Yes (Life-Threatening, Other)
  Sender: FDA-Public Use
  Company Number: FR-ROXANE LABORATORIES, INC.-2012-RO-00919RO

PATIENT
  Age: 64 Year
  Sex: Female

DRUGS (7)
  1. ASPIRIN [Suspect]
  2. PREDNISONE TAB [Suspect]
     Indication: RHEUMATOID ARTHRITIS
     Dosage: 15 MG
  3. ATENOLOL [Suspect]
  4. METFORMIN HCL [Suspect]
  5. FUROSEMIDE [Suspect]
  6. PERINDOPRIL ERBUMINE [Suspect]
  7. ROSUVASTATIN CALCIUM [Suspect]

REACTIONS (7)
  - SEPTIC SHOCK [None]
  - MULTI-ORGAN FAILURE [None]
  - RENAL FAILURE [None]
  - NECROTISING FASCIITIS [None]
  - COMA [None]
  - DISSEMINATED INTRAVASCULAR COAGULATION [None]
  - BACTERAEMIA [None]
